FAERS Safety Report 5971561-6 (Version None)
Quarter: 2008Q4

REPORT INFORMATION
  Report Type: 
  Country: None (occurrence: None)
  Receive Date: 20081201
  Receipt Date: 20081117
  Transmission Date: 20090506
  Serious: Yes (Other)
  Sender: FDA-Public Use
  Company Number: US-JNJFOC-20081102133

PATIENT
  Sex: Female

DRUGS (4)
  1. DOXORUBICIN HCL [Suspect]
     Route: 042
  2. DOXORUBICIN HCL [Suspect]
     Route: 042
  3. DOXORUBICIN HCL [Suspect]
     Indication: OVARIAN CANCER
     Route: 042
  4. GEMZAR [Suspect]
     Indication: OVARIAN CANCER
     Route: 065

REACTIONS (3)
  - CARBOHYDRATE ANTIGEN 125 INCREASED [None]
  - RASH [None]
  - RASH PRURITIC [None]
